FAERS Safety Report 5884575-1 (Version None)
Quarter: 2008Q3

REPORT INFORMATION
  Report Type: 
  Country: None (occurrence: None)
  Receive Date: 20080915
  Receipt Date: 20080915
  Transmission Date: 20090109
  Serious: No
  Sender: FDA-Public Use
  Company Number: None

PATIENT
  Age: 89 Year
  Sex: Female
  Weight: 58.9676 kg

DRUGS (1)
  1. GENERIC SYNTHROID - DONT HAVE OLD BOTTLE [Suspect]
     Indication: HYPOTHYROIDISM
     Dosage: FLUCTUATED QD PO
     Route: 048
     Dates: start: 20060101, end: 20070101

REACTIONS (3)
  - ANXIETY [None]
  - BLOOD THYROID STIMULATING HORMONE ABNORMAL [None]
  - TACHYCARDIA [None]
